FAERS Safety Report 9793151 (Version 1)
Quarter: 2014Q1

REPORT INFORMATION
  Report Type: Spontaneous
  Country: US (occurrence: US)
  Receive Date: 20140102
  Receipt Date: 20140102
  Transmission Date: 20141002
  Serious: No
  Sender: FDA-Public Use
  Company Number: US-BAYER-2013-159104

PATIENT
  Age: 85 Year
  Sex: Female
  Weight: 60.77 kg

DRUGS (7)
  1. ALEVE CAPLET [Suspect]
     Indication: BACK PAIN
     Dosage: 1 DF, PRN
     Route: 048
     Dates: start: 2013, end: 20131225
  2. ALEVE CAPLET [Suspect]
     Indication: ABDOMINAL DISTENSION
  3. BAYER ASPIRIN REGIMEN ADULT LOW STRENGTH [Concomitant]
     Indication: ISCHAEMIC HEART DISEASE PROPHYLAXIS
     Dosage: 1 DF, QD
     Route: 048
  4. IRON [Concomitant]
  5. OMEPRAZOLE [Concomitant]
  6. VITAMIN B12 [Concomitant]
  7. DILTIAZEM [Concomitant]

REACTIONS (2)
  - Somnolence [Recovered/Resolved]
  - Off label use [None]
